FAERS Safety Report 12105356 (Version 4)
Quarter: 2016Q1

REPORT INFORMATION
  Report Type: Spontaneous
  Country: GB (occurrence: GB)
  Receive Date: 20160223
  Receipt Date: 20160331
  Transmission Date: 20160526
  Serious: Yes (Death, Other)
  Sender: FDA-Public Use
  Company Number: GB-INCYTE CORPORATION-2015IN006333

PATIENT
  Age: 87 Year
  Sex: Male

DRUGS (1)
  1. JAKAFI [Suspect]
     Active Substance: RUXOLITINIB
     Indication: MYELOFIBROSIS
     Dosage: UNK
     Route: 065
     Dates: start: 20130801

REACTIONS (4)
  - Acute myeloid leukaemia [Fatal]
  - Pruritus [Unknown]
  - Platelet count decreased [Unknown]
  - Night sweats [Unknown]

NARRATIVE: CASE EVENT DATE: 20151222
